FAERS Safety Report 5381218-0 (Version None)
Quarter: 2007Q3

REPORT INFORMATION
  Report Type: 
  Country: None (occurrence: None)
  Receive Date: 20070706
  Receipt Date: 20070626
  Transmission Date: 20080115
  Serious: Yes (Hospitalization)
  Sender: FDA-Public Use
  Company Number: US-PFIZER INC-2007053123

PATIENT

DRUGS (1)
  1. LIPITOR [Suspect]

REACTIONS (3)
  - JAUNDICE [None]
  - LIVER DISORDER [None]
  - NAUSEA [None]
